FAERS Safety Report 4438537-1 (Version None)
Quarter: 2004Q3

REPORT INFORMATION
  Report Type: 
  Country: None (occurrence: None)
  Receive Date: 20040726
  Receipt Date: 20040521
  Transmission Date: 20050211
  Serious: No
  Sender: FDA-Public Use
  Company Number: USA040567674

PATIENT
  Sex: Female
  Weight: 47 kg

DRUGS (6)
  1. FORTEO [Suspect]
     Indication: OSTEOPOROSIS
     Dosage: 20 UG/ 1 DAY
     Dates: start: 20040409
  2. EVISTA [Suspect]
     Indication: OSTEOPOROSIS
  3. MIACALCIN [Concomitant]
  4. VERAPAMIL [Concomitant]
  5. ATENOLOL [Concomitant]
  6. PREVACID [Concomitant]

REACTIONS (5)
  - BODY HEIGHT DECREASED [None]
  - GASTROOESOPHAGEAL REFLUX DISEASE [None]
  - MUSCLE CRAMP [None]
  - NECK PAIN [None]
  - PAIN IN EXTREMITY [None]
